FAERS Safety Report 14578297 (Version 3)
Quarter: 2018Q3

REPORT INFORMATION
  Report Type: Spontaneous
  Country: PT (occurrence: PT)
  Receive Date: 20180227
  Receipt Date: 20180802
  Transmission Date: 20181010
  Serious: Yes (Other)
  Sender: FDA-Public Use
  Company Number: PT-SA-2018SA041443

PATIENT
  Age: 38 Year
  Sex: Female

DRUGS (3)
  1. CEFOTAXIME SODIUM [Suspect]
     Active Substance: CEFOTAXIME SODIUM
     Dosage: UNK UNK,UNK
     Route: 062
  2. CEFOXITIN [Suspect]
     Active Substance: CEFOXITIN SODIUM
     Dosage: UNK UNK,UNK
     Route: 062
  3. CEFTRIAXONE SODIUM. [Suspect]
     Active Substance: CEFTRIAXONE SODIUM
     Dosage: UNK UNK,UNK
     Route: 062

REACTIONS (5)
  - Eczema [Recovering/Resolving]
  - Dermatitis contact [Recovering/Resolving]
  - Occupational exposure to product [Unknown]
  - Therapeutic product cross-reactivity [Recovering/Resolving]
  - Skin plaque [Recovering/Resolving]

NARRATIVE: CASE EVENT DATE: 2012
